FAERS Safety Report 13182088 (Version 1)
Quarter: 2017Q1

REPORT INFORMATION
  Report Type: Spontaneous
  Country: US (occurrence: US)
  Receive Date: 20170203
  Receipt Date: 20170203
  Transmission Date: 20170428
  Serious: No
  Sender: FDA-Public Use
  Company Number: None

PATIENT

DRUGS (2)
  1. CAFFEINE CITRATE. [Suspect]
     Active Substance: CAFFEINE CITRATE
     Dosage: STRENGTH - 60 MG PER 3 ML?TYPE - SINGLE DOSE VIAL?SIZE 3ML
     Route: 042
  2. CAFFEINE CITRATE 60MG/3ML [Suspect]
     Active Substance: CAFFEINE CITRATE
     Dosage: DOSAGE FORM - SOLUTION?TYPE - VIAL?SIZE 3 ML?
     Route: 048

REACTIONS (1)
  - Product packaging confusion [None]
